FAERS Safety Report 21742328 (Version 1)
Quarter: 2022Q4

REPORT INFORMATION
  Report Type: Spontaneous
  Country: US (occurrence: None)
  Receive Date: 20221216
  Receipt Date: 20221216
  Transmission Date: 20230113
  Serious: No
  Sender: FDA-Public Use
  Company Number: None

PATIENT
  Age: 57 Year
  Sex: Male
  Weight: 88.5 kg

DRUGS (9)
  1. IBRANCE [Suspect]
     Active Substance: PALBOCICLIB
     Indication: Retroperitoneal cancer
     Dosage: OTHER FREQUENCY : 21DON7DOFF;?
     Route: 048
  2. ALBUTEROL [Concomitant]
  3. AMLODIPINE [Concomitant]
  4. BISACDOYL [Concomitant]
  5. MIRALAX [Concomitant]
  6. MONTEKLUKAST [Concomitant]
  7. OXYCODONE [Concomitant]
  8. SYMBICORT [Concomitant]
  9. ZOLPIDEM [Concomitant]
     Active Substance: ZOLPIDEM TARTRATE

REACTIONS (2)
  - Dry mouth [None]
  - Full blood count decreased [None]
